FAERS Safety Report 7205822-X (Version None)
Quarter: 2010Q4

REPORT INFORMATION
  Report Type: 
  Country: None (occurrence: None)
  Receive Date: 20101231
  Receipt Date: 20101229
  Transmission Date: 20110411
  Serious: Yes (Death)
  Sender: FDA-Public Use
  Company Number: IT-MERCK-1003ITA00009

PATIENT
  Age: 75 Year
  Sex: Female

DRUGS (5)
  1. SINEMET [Suspect]
     Indication: PARKINSON'S DISEASE
     Route: 048
     Dates: start: 20100215, end: 20100218
  2. BROMAZEPAM [Concomitant]
     Route: 048
  3. VALPROATE SODIUM [Concomitant]
     Route: 048
  4. ALPRAZOLAM [Concomitant]
     Route: 048
  5. MIRTAZAPINE [Concomitant]
     Route: 048

REACTIONS (3)
  - CARDIAC ARREST [None]
  - DEATH [None]
  - PSYCHOMOTOR HYPERACTIVITY [None]
